FAERS Safety Report 8350920-0 (Version None)
Quarter: 2012Q2

REPORT INFORMATION
  Report Type: 
  Country: None (occurrence: None)
  Receive Date: 20120510
  Receipt Date: 20101111
  Transmission Date: 20120825
  Serious: No
  Sender: FDA-Public Use
  Company Number: US-TEVA-2010005893

PATIENT
  Sex: Female
  Weight: 61.29 kg

DRUGS (6)
  1. PROZAC [Concomitant]
  2. KLONOPIN [Concomitant]
  3. WELLBUTRIN [Concomitant]
  4. RISPERIDONE [Concomitant]
  5. NUVIGIL [Suspect]
     Dosage: 250 MILLIGRAM;
     Route: 048
     Dates: start: 20090101
  6. TRAZODONE HCL [Concomitant]

REACTIONS (1)
  - DRUG INEFFECTIVE [None]
